FAERS Safety Report 6054176-3 (Version None)
Quarter: 2009Q1

REPORT INFORMATION
  Report Type: 
  Country: None (occurrence: None)
  Receive Date: 20090127
  Receipt Date: 20090122
  Transmission Date: 20090719
  Serious: Yes (Other)
  Sender: FDA-Public Use
  Company Number: US-JNJCH-2009001979

PATIENT
  Age: 50 Year
  Sex: Male
  Weight: 83.9 kg

DRUGS (2)
  1. ROGAINE [Suspect]
     Indication: ALOPECIA
     Dosage: TEXT:1 ML 2X TIMES
     Route: 061
     Dates: start: 20081122, end: 20090119
  2. ASPIRIN [Concomitant]
     Indication: DRUG USE FOR UNKNOWN INDICATION
     Route: 065

REACTIONS (2)
  - BLOOD PRESSURE DECREASED [None]
  - ERECTILE DYSFUNCTION [None]
